FAERS Safety Report 19932478 (Version 1)
Quarter: 2021Q4

REPORT INFORMATION
  Report Type: Report from Study
  Country: IL (occurrence: IL)
  Receive Date: 20211008
  Receipt Date: 20211008
  Transmission Date: 20220304
  Serious: Yes (Death, Hospitalization, Other)
  Sender: FDA-Public Use
  Company Number: IL-SA-SAC20211006000780

PATIENT
  Age: 72 Year
  Sex: Female

DRUGS (1)
  1. IMIGLUCERASE [Suspect]
     Active Substance: IMIGLUCERASE
     Indication: Gaucher^s disease
     Dosage: 1200 IU, QOW
     Route: 065

REACTIONS (4)
  - Cystitis [Not Recovered/Not Resolved]
  - Hypersomnia [Not Recovered/Not Resolved]
  - Communication disorder [Not Recovered/Not Resolved]
  - Death [Fatal]

NARRATIVE: CASE EVENT DATE: 20210901
